FAERS Safety Report 13247352 (Version 2)
Quarter: 2017Q2

REPORT INFORMATION
  Report Type: Report from Study
  Country: US (occurrence: US)
  Receive Date: 20170217
  Receipt Date: 20170417
  Transmission Date: 20170830
  Serious: No
  Sender: FDA-Public Use
  Company Number: GXBR2017US000551

PATIENT
  Age: 29 Year
  Sex: Female

DRUGS (1)
  1. GLATOPA [Suspect]
     Active Substance: GLATIRAMER ACETATE
     Indication: MULTIPLE SCLEROSIS
     Dosage: 20 MG, QD
     Route: 065
     Dates: start: 20170113

REACTIONS (6)
  - Pruritus [Not Recovered/Not Resolved]
  - Injection site rash [Unknown]
  - Contusion [Not Recovered/Not Resolved]
  - Injection site mass [Unknown]
  - Injection site swelling [Unknown]
  - Injection site warmth [Unknown]

NARRATIVE: CASE EVENT DATE: 20170113
